FAERS Safety Report 7488337-3 (Version None)
Quarter: 2011Q2

REPORT INFORMATION
  Report Type: 
  Country: None (occurrence: None)
  Receive Date: 20110518
  Receipt Date: 20110516
  Transmission Date: 20111010
  Serious: Yes (Hospitalization, Other)
  Sender: FDA-Public Use
  Company Number: US-PFIZER INC-2011032288

PATIENT
  Sex: Male

DRUGS (5)
  1. VICODIN [Concomitant]
     Indication: MUSCULOSKELETAL CHEST PAIN
  2. CHANTIX [Suspect]
     Indication: SMOKING CESSATION THERAPY
     Dosage: STARTER MONTH PACK
     Dates: start: 20070801, end: 20070901
  3. MICARDIS [Concomitant]
     Indication: HYPERTENSION
     Dosage: UNK
     Dates: start: 20060101
  4. NEBIVOLOL [Concomitant]
     Indication: HYPERTENSION
     Dosage: UNK
     Dates: start: 20060101
  5. VICODIN [Concomitant]
     Indication: BACK PAIN
     Dosage: UNK
     Dates: start: 20040101, end: 20100101

REACTIONS (10)
  - BIPOLAR DISORDER [None]
  - SUICIDAL IDEATION [None]
  - ANGER [None]
  - HOMICIDAL IDEATION [None]
  - AGORAPHOBIA [None]
  - AGGRESSION [None]
  - ANXIETY [None]
  - MAJOR DEPRESSION [None]
  - HALLUCINATION [None]
  - INSOMNIA [None]
